FAERS Safety Report 19277337 (Version 2)
Quarter: 2021Q2

REPORT INFORMATION
  Report Type: Spontaneous
  Country: US (occurrence: US)
  Receive Date: 20210519
  Receipt Date: 20210524
  Transmission Date: 20210717
  Serious: Yes (Hospitalization)
  Sender: FDA-Public Use
  Company Number: US-JNJFOC-20210521073

PATIENT
  Age: 50 Year
  Sex: Female

DRUGS (1)
  1. TREMFYA [Suspect]
     Active Substance: GUSELKUMAB
     Indication: PSORIASIS
     Route: 058
     Dates: start: 202103, end: 202104

REACTIONS (3)
  - Nail infection [Unknown]
  - Therapeutic response decreased [Unknown]
  - Localised infection [Unknown]

NARRATIVE: CASE EVENT DATE: 20210511
